FAERS Safety Report 7231226-X (Version None)
Quarter: 2011Q1

REPORT INFORMATION
  Report Type: 
  Country: None (occurrence: None)
  Receive Date: 20110118
  Receipt Date: 20110111
  Transmission Date: 20110831
  Serious: Yes (Hospitalization, Disabling)
  Sender: FDA-Public Use
  Company Number: B0691093A

PATIENT
  Sex: Female

DRUGS (11)
  1. CLINDAMYCIN [Suspect]
     Route: 065
  2. CEFAZOLIN [Suspect]
     Route: 065
  3. LIPITOR [Concomitant]
     Dosage: 10MG PER DAY
     Route: 048
  4. UNKNOWN DRUG [Concomitant]
     Indication: PHARYNGITIS
     Dosage: 1G PER DAY
     Dates: start: 20080609
  5. ZYLORIC [Suspect]
     Dosage: 200MG PER DAY
     Route: 048
     Dates: start: 20080512, end: 20080610
  6. UNKNOWN DRUG [Concomitant]
     Route: 048
     Dates: start: 20080608
  7. JUVELA N [Concomitant]
     Dosage: 400MG PER DAY
     Route: 048
  8. BLOPRESS [Concomitant]
     Indication: HYPERTENSION
     Dosage: 4MG PER DAY
     Route: 048
  9. BUP-4 [Concomitant]
     Indication: NEUROGENIC BLADDER
     Dosage: 20MG PER DAY
     Route: 048
     Dates: start: 20051216
  10. UNKNOWN DRUG [Suspect]
     Route: 065
  11. UNKNOWN DRUG [Concomitant]
     Dosage: 600MG PER DAY
     Route: 042
     Dates: start: 20080609

REACTIONS (47)
  - RASH [None]
  - ERYTHEMA [None]
  - SKIN EROSION [None]
  - HEADACHE [None]
  - HEMIPLEGIA [None]
  - TOXIC EPIDERMAL NECROLYSIS [None]
  - OCULAR HYPERAEMIA [None]
  - ORAL MUCOSA EROSION [None]
  - PRURITUS [None]
  - CORNEAL EPITHELIUM DEFECT [None]
  - BLISTER [None]
  - PIGMENTATION DISORDER [None]
  - OROPHARYNGEAL PAIN [None]
  - CORNEAL EROSION [None]
  - OXYGEN SATURATION DECREASED [None]
  - EYELID PTOSIS [None]
  - CYTOMEGALOVIRUS INFECTION [None]
  - FACE OEDEMA [None]
  - TOXIC SKIN ERUPTION [None]
  - TONSILLAR DISORDER [None]
  - COUGH [None]
  - RASH GENERALISED [None]
  - ASPERGILLOSIS [None]
  - VISUAL IMPAIRMENT [None]
  - DYSPNOEA [None]
  - EYE DISORDER [None]
  - EYE PAIN [None]
  - OTITIS EXTERNA [None]
  - PYREXIA [None]
  - UPPER RESPIRATORY TRACT INFECTION [None]
  - EYE SWELLING [None]
  - BACTERIAL INFECTION [None]
  - KERATITIS [None]
  - PHARYNGITIS [None]
  - DIARRHOEA [None]
  - SKIN EXFOLIATION [None]
  - PHOTOSENSITIVITY REACTION [None]
  - MUSCULAR WEAKNESS [None]
  - STOMATITIS [None]
  - DECREASED APPETITE [None]
  - LIP PAIN [None]
  - CONJUNCTIVAL HYPERAEMIA [None]
  - PRODUCTIVE COUGH [None]
  - WHEEZING [None]
  - GENERALISED OEDEMA [None]
  - NIKOLSKY'S SIGN [None]
  - MOUTH HAEMORRHAGE [None]
